FAERS Safety Report 23933260 (Version 4)
Quarter: 2024Q3

REPORT INFORMATION
  Report Type: Spontaneous
  Country: US (occurrence: US)
  Receive Date: 20240603
  Receipt Date: 20240919
  Transmission Date: 20241017
  Serious: No
  Sender: PFIZER
  Company Number: US-PFIZER INC-PV202400071518

PATIENT
  Age: 70 Year
  Sex: Female
  Weight: 64.41 kg

DRUGS (4)
  1. TUKYSA [Suspect]
     Active Substance: TUCATINIB
     Indication: Breast cancer stage IV
     Dosage: 300 MG, 2X/DAY
     Route: 048
     Dates: start: 202312
  2. TUKYSA [Suspect]
     Active Substance: TUCATINIB
     Dosage: 50MG, 5 TABLETS TWO TIMES A DAY
     Dates: end: 2024
  3. TUKYSA [Suspect]
     Active Substance: TUCATINIB
     Dosage: 50MG, 5 TABLETS TWO TIMES A DAY
  4. CAPECITABINE [Concomitant]
     Active Substance: CAPECITABINE
     Dosage: 500 MG, 2X/DAY

REACTIONS (2)
  - Palmar-plantar erythrodysaesthesia syndrome [Recovered/Resolved]
  - Product dose omission issue [Unknown]

NARRATIVE: CASE EVENT DATE: 20240101
